FAERS Safety Report 23680746 (Version 4)
Quarter: 2024Q3

REPORT INFORMATION
  Report Type: Spontaneous
  Country: US (occurrence: US)
  Receive Date: 20240328
  Receipt Date: 20240927
  Transmission Date: 20241017
  Serious: No
  Sender: BRISTOL MYERS SQUIBB
  Company Number: US-BRISTOL-MYERS SQUIBB COMPANY-2024-048658

PATIENT
  Age: 8 Year
  Sex: Female

DRUGS (2)
  1. ORENCIA [Suspect]
     Active Substance: ABATACEPT
     Indication: Juvenile idiopathic arthritis
     Route: 058
     Dates: start: 202402
  2. ORENCIA [Suspect]
     Active Substance: ABATACEPT
     Route: 058
     Dates: start: 202402

REACTIONS (7)
  - Hyperacusis [Unknown]
  - Ear pruritus [Unknown]
  - Arthralgia [Unknown]
  - Milk allergy [Unknown]
  - Mood altered [Unknown]
  - Food intolerance [Unknown]
  - Nausea [Unknown]
